FAERS Safety Report 23390663 (Version 3)
Quarter: 2024Q1

REPORT INFORMATION
  Report Type: Spontaneous
  Country: US (occurrence: US)
  Receive Date: 20240111
  Receipt Date: 20240205
  Transmission Date: 20240410
  Serious: No
  Sender: FDA-Public Use
  Company Number: US-BRISTOL-MYERS SQUIBB COMPANY-2024-005114

PATIENT
  Age: 74 Year
  Sex: Female

DRUGS (1)
  1. LENALIDOMIDE [Suspect]
     Active Substance: LENALIDOMIDE
     Indication: Plasma cell myeloma
     Dosage: MOUTH DAILY FOR 21 DAYS, FOLLOWED BY 7 DAYS OF
     Route: 048

REACTIONS (19)
  - Rash macular [Not Recovered/Not Resolved]
  - Constipation [Not Recovered/Not Resolved]
  - Diarrhoea [Not Recovered/Not Resolved]
  - Alopecia [Not Recovered/Not Resolved]
  - Blood iron decreased [Unknown]
  - Pain in extremity [Not Recovered/Not Resolved]
  - Arthritis [Unknown]
  - Paraesthesia [Unknown]
  - Hypoaesthesia [Unknown]
  - Dizziness [Unknown]
  - Weight decreased [Unknown]
  - Appetite disorder [Unknown]
  - Dysgeusia [Recovering/Resolving]
  - Anxiety [Unknown]
  - Depressed mood [Unknown]
  - Tooth disorder [Unknown]
  - Dry skin [Unknown]
  - Skin discolouration [Unknown]
  - Injection site exfoliation [Unknown]
